FAERS Safety Report 6873068-0 (Version None)
Quarter: 2010Q3

REPORT INFORMATION
  Report Type: 
  Country: None (occurrence: None)
  Receive Date: 20100723
  Receipt Date: 20081120
  Transmission Date: 20110219
  Serious: No
  Sender: FDA-Public Use
  Company Number: US-PFIZER INC-2008099160

PATIENT
  Sex: Female

DRUGS (2)
  1. CHANTIX [Suspect]
  2. OXYCONTIN [Interacting]
     Indication: PAIN

REACTIONS (3)
  - DRUG INEFFECTIVE [None]
  - DRUG INTERACTION [None]
  - PAIN [None]
